FAERS Safety Report 23156325 (Version 2)
Quarter: 2025Q2

REPORT INFORMATION
  Report Type: Spontaneous
  Country: FR (occurrence: FR)
  Receive Date: 20231107
  Receipt Date: 20250625
  Transmission Date: 20250716
  Serious: Yes (Death, Other)
  Sender: BRISTOL-MYERS SQUIBB COMPANY
  Company Number: FR-BRISTOL-MYERS SQUIBB COMPANY-2023-110680

PATIENT
  Age: 82 Year
  Sex: Female
  Weight: 70 kg

DRUGS (3)
  1. OPDIVO [Suspect]
     Active Substance: NIVOLUMAB
     Indication: Pleural mesothelioma malignant
     Route: 042
     Dates: start: 20230509, end: 20230524
  2. OPDIVO [Suspect]
     Active Substance: NIVOLUMAB
     Dates: start: 20230607
  3. YERVOY [Suspect]
     Active Substance: IPILIMUMAB
     Indication: Pleural mesothelioma malignant
     Route: 042
     Dates: start: 20230509, end: 20230524

REACTIONS (1)
  - Malignant neoplasm progression [Fatal]
